FAERS Safety Report 22274201 (Version 1)
Quarter: 2023Q2

REPORT INFORMATION
  Report Type: Spontaneous
  Country: US (occurrence: None)
  Receive Date: 20230501
  Receipt Date: 20230501
  Transmission Date: 20230721
  Serious: Yes (Other)
  Sender: FDA-Public Use
  Company Number: None

PATIENT
  Age: 31 Year
  Sex: Female

DRUGS (4)
  1. HYDROCORTISONE [Suspect]
     Active Substance: HYDROCORTISONE
     Indication: Addison^s disease
     Dosage: FREQUENCY : TWICE A DAY;?
     Route: 048
  2. FLUDROCORTISONE [Concomitant]
     Active Substance: FLUDROCORTISONE
  3. LEVOTHYROXINE [Concomitant]
     Active Substance: LEVOTHYROXINE
  4. VITAMIN D3 [Concomitant]
     Active Substance: CHOLECALCIFEROL

REACTIONS (12)
  - Product substitution issue [None]
  - Fatigue [None]
  - Nausea [None]
  - Dyspnoea [None]
  - Headache [None]
  - Syncope [None]
  - Skin discolouration [None]
  - Blood corticotrophin decreased [None]
  - Drug ineffective [None]
  - Product availability issue [None]
  - Weight decreased [None]
  - Product formulation issue [None]

NARRATIVE: CASE EVENT DATE: 20220701
